FAERS Safety Report 6572088-3 (Version None)
Quarter: 2010Q1

REPORT INFORMATION
  Report Type: 
  Country: None (occurrence: None)
  Receive Date: 20100205
  Receipt Date: 20100129
  Transmission Date: 20100710
  Serious: Yes (Death)
  Sender: FDA-Public Use
  Company Number: CH-BAYER-201013232GPV

PATIENT
  Age: 25 Year
  Sex: Male
  Weight: 54 kg

DRUGS (4)
  1. ASPIRIN [Suspect]
     Indication: HEADACHE
     Dosage: INTAKE OF ONE TABLET
     Route: 048
     Dates: start: 20080126
  2. INSULIN LISPRO [Concomitant]
     Indication: TYPE 1 DIABETES MELLITUS
  3. INSULIN GLARGIN [Concomitant]
     Indication: TYPE 1 DIABETES MELLITUS
  4. MEFLOQUINE HCL [Concomitant]
     Indication: TYPE 1 DIABETES MELLITUS

REACTIONS (8)
  - ASTHENIA [None]
  - AUTONOMIC NERVOUS SYSTEM IMBALANCE [None]
  - HEADACHE [None]
  - HUNGER [None]
  - HYPERHIDROSIS [None]
  - HYPOGLYCAEMIA [None]
  - SUDDEN DEATH [None]
  - VERTIGO [None]
